FAERS Safety Report 8493316-3 (Version None)
Quarter: 2012Q3

REPORT INFORMATION
  Report Type: 
  Country: None (occurrence: None)
  Receive Date: 20120706
  Receipt Date: 20120627
  Transmission Date: 20120928
  Serious: Yes (Hospitalization, Other)
  Sender: FDA-Public Use
  Company Number: US-ASTRAZENECA-2012SE31404

PATIENT
  Age: 53 Year
  Sex: Male
  Weight: 113.4 kg

DRUGS (4)
  1. SEROQUEL XR [Suspect]
     Indication: BIPOLAR DISORDER
     Route: 048
  2. SEROQUEL XR [Suspect]
     Indication: BIPOLAR I DISORDER
     Route: 048
  3. CYMBALTA [Concomitant]
  4. CYMBALTA [Concomitant]

REACTIONS (2)
  - NEOPLASM MALIGNANT [None]
  - FEMUR FRACTURE [None]
